FAERS Safety Report 21258988 (Version 9)
Quarter: 2022Q4

REPORT INFORMATION
  Report Type: Report from Study
  Country: CO (occurrence: CO)
  Receive Date: 20220826
  Receipt Date: 20221117
  Transmission Date: 20230113
  Serious: Yes (Hospitalization, Other)
  Sender: FDA-Public Use
  Company Number: CO-SA-SAC20220823000926

PATIENT
  Age: 3 Year
  Sex: Male

DRUGS (12)
  1. LARONIDASE [Suspect]
     Active Substance: LARONIDASE
     Indication: Mucopolysaccharidosis I
     Dosage: 3 DF, QW
     Route: 041
     Dates: start: 20200625
  2. LARONIDASE [Suspect]
     Active Substance: LARONIDASE
     Dosage: 2.9 MG, QW
     Route: 041
     Dates: start: 20200625, end: 20220923
  3. LEVETIRACETAM [Suspect]
     Active Substance: LEVETIRACETAM
     Dosage: 1 MG, QD
     Dates: end: 20220609
  4. LEVETIRACETAM [Suspect]
     Active Substance: LEVETIRACETAM
     Dosage: 1 MG, Q12H
     Route: 048
  5. CARVEDILOL [Concomitant]
     Active Substance: CARVEDILOL
     Indication: Cardiomyopathy
     Dosage: 6.25 UG, Q12H
  6. CARVEDILOL [Concomitant]
     Active Substance: CARVEDILOL
     Indication: Cardiac murmur
     Dosage: 6.25 MG, Q12H
     Route: 048
  7. FUROSEMIDE [Concomitant]
     Active Substance: FUROSEMIDE
     Dosage: 40 MG, Q12H (40 MG HALF TABLET IN 10 CC AND TAKES 3.5 CC./ 12 HOURS)
     Route: 048
  8. FUROSEMIDE [Concomitant]
     Active Substance: FUROSEMIDE
     Dosage: 7 MG, QD
  9. FLUTICASONE [Concomitant]
     Active Substance: FLUTICASONE
     Dosage: UNK, Q12H
     Route: 045
  10. FERROUS SULFATE [Concomitant]
     Active Substance: FERROUS SULFATE
     Indication: Anaemia
     Dosage: 20 DROP, Q12H
  11. FERROUS SULFATE [Concomitant]
     Active Substance: FERROUS SULFATE
     Dosage: 3 ML, QD
     Route: 048
  12. CETIRIZINE [Concomitant]
     Active Substance: CETIRIZINE HYDROCHLORIDE
     Indication: Hypersensitivity
     Dosage: UNK UNK, QD
     Route: 048

REACTIONS (15)
  - Seizure [Recovered/Resolved]
  - Loss of consciousness [Recovered/Resolved]
  - Aspiration [Recovered/Resolved]
  - Bruxism [Recovered/Resolved]
  - Vomiting [Recovered/Resolved]
  - Oxygen saturation decreased [Recovered/Resolved]
  - Pyrexia [Recovered/Resolved]
  - Dyspnoea [Recovered/Resolved]
  - Tic [Recovered/Resolved]
  - Ear infection [Recovered/Resolved]
  - Otorrhoea [Recovered/Resolved]
  - Apnoea [Recovered/Resolved]
  - Hydrocephalus [Unknown]
  - Adenoidectomy [Recovered/Resolved]
  - Pyrexia [Unknown]

NARRATIVE: CASE EVENT DATE: 20220319
